FAERS Safety Report 24070736 (Version 1)
Quarter: 2024Q3

REPORT INFORMATION
  Report Type: Report from Study
  Country: US (occurrence: US)
  Receive Date: 20240710
  Receipt Date: 20240710
  Transmission Date: 20241017
  Serious: No
  Sender: ROCHE
  Company Number: US-ROCHE-3554643

PATIENT
  Age: 94 Year
  Sex: Female
  Weight: 64.41 kg

DRUGS (8)
  1. VABYSMO [Suspect]
     Active Substance: FARICIMAB\FARICIMAB-SVOA
     Indication: Neovascular age-related macular degeneration
     Dosage: 1 INJECTION TO BOTH EYES, THEN MOVED TO EVERY 8 WEEKS, DATE OF SERVICE: 21/DEC/2023
     Route: 065
     Dates: start: 2023
  2. VABYSMO [Suspect]
     Active Substance: FARICIMAB\FARICIMAB-SVOA
     Indication: Choroidal neovascularisation
  3. METOPROLOL [Concomitant]
     Active Substance: METOPROLOL
     Indication: Arrhythmia
     Dosage: ORAL TABLE 25 MG ONCE DAILY
  4. HERBALS\TURMERIC [Concomitant]
     Active Substance: HERBALS\TURMERIC
     Dosage: ORAL CAPSULE 500 MG ONCE DAILY
  5. ASPIRIN [Concomitant]
     Active Substance: ASPIRIN
     Dosage: ORAL TABLET 81 MG
     Dates: start: 2021
  6. ALPHA LIPOIC ACID [Concomitant]
     Active Substance: .ALPHA.-LIPOIC ACID
     Dosage: ORAL CAPSULE 200 MG ONCE DAILY
     Dates: start: 2020
  7. VITAMIN D3 [Concomitant]
     Active Substance: CHOLECALCIFEROL
  8. ELIQUIS [Concomitant]
     Active Substance: APIXABAN

REACTIONS (3)
  - Dementia [Not Recovered/Not Resolved]
  - Mobility decreased [Not Recovered/Not Resolved]
  - Off label use [Unknown]

NARRATIVE: CASE EVENT DATE: 20230101
